FAERS Safety Report 20183591 (Version 1)
Quarter: 2021Q4

REPORT INFORMATION
  Report Type: Spontaneous
  Country: US (occurrence: US)
  Receive Date: 20211214
  Receipt Date: 20211214
  Transmission Date: 20220303
  Serious: Yes (Hospitalization)
  Sender: FDA-Public Use
  Company Number: US-ABBVIE-20K-163-3652225-00

PATIENT
  Sex: Male

DRUGS (2)
  1. IMBRUVICA [Suspect]
     Active Substance: IBRUTINIB
     Indication: Product used for unknown indication
     Route: 048
     Dates: start: 20170120
  2. IMBRUVICA [Suspect]
     Active Substance: IBRUTINIB
     Dosage: IMBRUVICA HALF DOSE
     Route: 048

REACTIONS (1)
  - Pyrexia [Unknown]
